FAERS Safety Report 8284909-7 (Version None)
Quarter: 2012Q2

REPORT INFORMATION
  Report Type: 
  Country: None (occurrence: None)
  Receive Date: 20120413
  Receipt Date: 20110914
  Transmission Date: 20120825
  Serious: No
  Sender: FDA-Public Use
  Company Number: US-ASTRAZENECA-2011SE53474

PATIENT
  Age: 55 Year
  Sex: Female

DRUGS (1)
  1. NEXIUM [Suspect]
     Route: 048

REACTIONS (9)
  - GASTROOESOPHAGEAL REFLUX DISEASE [None]
  - OESOPHAGEAL PAIN [None]
  - DYSPNOEA [None]
  - MALAISE [None]
  - DRUG DOSE OMISSION [None]
  - VISUAL IMPAIRMENT [None]
  - ILL-DEFINED DISORDER [None]
  - DIZZINESS [None]
  - UPPER RESPIRATORY TRACT INFECTION [None]
